FAERS Safety Report 5233400-0 (Version None)
Quarter: 2007Q1

REPORT INFORMATION
  Report Type: 
  Country: None (occurrence: None)
  Receive Date: 20070206
  Receipt Date: 20070124
  Transmission Date: 20070707
  Serious: Yes (Death, Life-Threatening)
  Sender: FDA-Public Use
  Company Number: 2007JP000327

PATIENT
  Age: 43 Year
  Sex: Female
  Weight: 49 kg

DRUGS (18)
  1. FUNGUARD (MICAFUNGIN INJECTION) [Suspect]
     Indication: FUNGAL INFECTION
     Dosage: 150 MG, IV DRIP
     Route: 041
     Dates: start: 20060605, end: 20060716
  2. ALKERAN [Suspect]
     Indication: DRUG USE FOR UNKNOWN INDICATION
     Dosage: 60 MG
     Dates: start: 20060629, end: 20060630
  3. VFEND [Concomitant]
  4. BAKTAR (SULFAMETHOXAZOLE, TRIMETHOPRIM) [Concomitant]
  5. LEVOFLOXACIN [Concomitant]
  6. TIENAM (IMIPENEM, CILASTATIN SODIUM) [Concomitant]
  7. VANCOMYCIN HYDROCHLORIDE [Concomitant]
  8. TARGOCID [Concomitant]
  9. MEROPEN (MEROPENEM) [Concomitant]
  10. ZOVIRAX [Concomitant]
  11. NEORAL [Concomitant]
  12. POLYGLOBIN (IMMUNOGLOBULIN HUMAN NORMAL, MALTOSE) [Concomitant]
  13. VEPESID [Concomitant]
  14. FILDESIN (VINDESINE SULFATE) [Concomitant]
  15. HYDREA [Concomitant]
  16. METHOTREXATE (METHOTREXATE SODIUM) [Concomitant]
  17. CYTARABINE [Concomitant]
  18. FLUDARA [Concomitant]

REACTIONS (3)
  - BLOOD BILIRUBIN INCREASED [None]
  - THROMBOTIC MICROANGIOPATHY [None]
  - WHITE BLOOD CELL COUNT DECREASED [None]
